FAERS Safety Report 5223882-2 (Version None)
Quarter: 2007Q1

REPORT INFORMATION
  Report Type: 
  Country: None (occurrence: None)
  Receive Date: 20070130
  Receipt Date: 20070122
  Transmission Date: 20070707
  Serious: Yes (Death, Disabling)
  Sender: FDA-Public Use
  Company Number: PHBS2006JP20065

PATIENT
  Age: 41 Year
  Sex: Female
  Weight: 45 kg

DRUGS (6)
  1. SANDIMMUNE [Suspect]
     Indication: BONE MARROW TRANSPLANT
     Dosage: 140 MG/D
     Route: 042
     Dates: start: 20061112, end: 20061205
  2. SANDIMMUNE [Suspect]
     Dosage: 70 MG/D
     Route: 042
     Dates: start: 20061206
  3. PROGRAF [Concomitant]
     Indication: BONE MARROW TRANSPLANT
     Route: 065
  4. FLUCONAZOLE [Concomitant]
     Dosage: 400 MG/D
     Route: 042
     Dates: start: 20061221
  5. BACTRIM [Concomitant]
     Dosage: 5 UL/D
     Route: 042
     Dates: start: 20061221
  6. ACYCLOVIR [Concomitant]
     Dosage: 250 MG/D
     Route: 042
     Dates: start: 20061221

REACTIONS (50)
  - ABDOMINAL PAIN [None]
  - BLOOD FIBRINOGEN DECREASED [None]
  - BLOOD LACTATE DEHYDROGENASE INCREASED [None]
  - BLOOD PRESSURE INCREASED [None]
  - BLOOD SODIUM DECREASED [None]
  - BLOOD URINE PRESENT [None]
  - BRAIN DEATH [None]
  - BRAIN OEDEMA [None]
  - CATHETER RELATED INFECTION [None]
  - COMA [None]
  - COUGH [None]
  - CYTOMEGALOVIRUS ANTIGEN POSITIVE [None]
  - DEHYDRATION [None]
  - DEPRESSED LEVEL OF CONSCIOUSNESS [None]
  - DIABETES INSIPIDUS [None]
  - DIARRHOEA [None]
  - DRUG LEVEL INCREASED [None]
  - DUODENAL ULCER [None]
  - EROSIVE DUODENITIS [None]
  - ERYTHEMA [None]
  - FIBRIN DEGRADATION PRODUCTS INCREASED [None]
  - FUNGAL INFECTION [None]
  - GASTRITIS EROSIVE [None]
  - GASTROINTESTINAL DISORDER [None]
  - GRAFT VERSUS HOST DISEASE [None]
  - HEADACHE [None]
  - HYPOPNOEA [None]
  - INTRAVENTRICULAR HAEMORRHAGE [None]
  - LEUKOENCEPHALOPATHY [None]
  - LIVER FUNCTION TEST ABNORMAL [None]
  - MALAISE [None]
  - NAUSEA [None]
  - OEDEMA PERIPHERAL [None]
  - PLATELET COUNT DECREASED [None]
  - PNEUMONIA [None]
  - POLLAKIURIA [None]
  - POLYURIA [None]
  - PUPILS UNEQUAL [None]
  - PYREXIA [None]
  - RASH [None]
  - RESPIRATORY ARREST [None]
  - SKIN EXFOLIATION [None]
  - SPUTUM ABNORMAL [None]
  - SUBARACHNOID HAEMORRHAGE [None]
  - TACHYCARDIA [None]
  - THROMBOTIC MICROANGIOPATHY [None]
  - URINARY RETENTION [None]
  - URINE OSMOLARITY DECREASED [None]
  - VISUAL DISTURBANCE [None]
  - VOMITING [None]
